FAERS Safety Report 6001075-9 (Version None)
Quarter: 2008Q4

REPORT INFORMATION
  Report Type: 
  Country: None (occurrence: None)
  Receive Date: 20081215
  Receipt Date: 20080324
  Transmission Date: 20090506
  Serious: No
  Sender: FDA-Public Use
  Company Number: US-AMGEN-KDL268974

PATIENT
  Sex: Female

DRUGS (2)
  1. ENBREL [Suspect]
     Indication: RHEUMATOID ARTHRITIS
     Route: 058
     Dates: start: 20080303
  2. ENBREL [Suspect]
     Indication: OSTEOARTHRITIS

REACTIONS (1)
  - DYSPEPSIA [None]
